FAERS Safety Report 7437486-4 (Version None)
Quarter: 2011Q2

REPORT INFORMATION
  Report Type: 
  Country: None (occurrence: None)
  Receive Date: 20110426
  Receipt Date: 20110415
  Transmission Date: 20111010
  Serious: Yes (Hospitalization)
  Sender: FDA-Public Use
  Company Number: PHHY2011IT31758

PATIENT
  Sex: Male

DRUGS (2)
  1. AMOXICILINA [Suspect]
     Indication: UPPER RESPIRATORY TRACT INFECTION
     Dosage: 5 G/ 100ML
     Route: 048
     Dates: start: 20110408, end: 20110409
  2. AMOXICILLIN [Suspect]
     Indication: UPPER RESPIRATORY TRACT INFECTION
     Dosage: 5 G/ 100 ML
     Route: 048
     Dates: start: 20110410, end: 20110412

REACTIONS (1)
  - ANGIOEDEMA [None]
